FAERS Safety Report 19564346 (Version 1)
Quarter: 2021Q3

REPORT INFORMATION
  Report Type: Spontaneous
  Country: US (occurrence: US)
  Receive Date: 20210716
  Receipt Date: 20210716
  Transmission Date: 20211014
  Serious: Yes (Life-Threatening, Hospitalization, Disabling)
  Sender: FDA-Public Use
  Company Number: None

PATIENT
  Age: 75 Year
  Sex: Male
  Weight: 67.5 kg

DRUGS (15)
  1. TAMULOSIN [Concomitant]
     Active Substance: TAMSULOSIN
  2. NITROGLYCERIN. [Concomitant]
     Active Substance: NITROGLYCERIN
  3. ASPIRIN. [Concomitant]
     Active Substance: ASPIRIN
  4. ATORVASTATIN [Concomitant]
     Active Substance: ATORVASTATIN
  5. CEFDINIR. [Concomitant]
     Active Substance: CEFDINIR
  6. ALIGN [Concomitant]
     Active Substance: BIFIDOBACTERIUM LONGUM SUBSP. INFANTIS
  7. PROCHLORPER [Concomitant]
  8. OXYCODOD/ACETAM [Concomitant]
  9. MYRBETRIQ [Concomitant]
     Active Substance: MIRABEGRON
  10. CIPROFLOXACIN. [Suspect]
     Active Substance: CIPROFLOXACIN
     Indication: PNEUMONIA
     Dosage: ?          QUANTITY:20 TABLET(S);?
     Route: 048
     Dates: start: 20190320, end: 20190330
  11. DILTIAZEM. [Concomitant]
     Active Substance: DILTIAZEM
  12. RAMIPRIL. [Concomitant]
     Active Substance: RAMIPRIL
  13. ISOSORB MONO ER [Concomitant]
     Active Substance: ISOSORBIDE MONONITRATE
  14. TRAZODONE [Concomitant]
     Active Substance: TRAZODONE HYDROCHLORIDE
  15. MULTIVITAMIN [Concomitant]
     Active Substance: VITAMINS

REACTIONS (7)
  - Near death experience [None]
  - Asthenia [None]
  - Aortic rupture [None]
  - Gait disturbance [None]
  - Illness [None]
  - Angiopathy [None]
  - Aortic disorder [None]

NARRATIVE: CASE EVENT DATE: 20200307
